FAERS Safety Report 12008064 (Version 1)
Quarter: 2016Q1

REPORT INFORMATION
  Report Type: Spontaneous
  Country: US (occurrence: US)
  Receive Date: 20160205
  Receipt Date: 20160205
  Transmission Date: 20160526
  Serious: No
  Sender: FDA-Public Use
  Company Number: US-ASTRAZENECA-2011SE66433

PATIENT
  Age: 63 Year
  Sex: Female
  Weight: 105.2 kg

DRUGS (5)
  1. ARIMIDEX [Suspect]
     Active Substance: ANASTROZOLE
     Indication: BREAST CANCER FEMALE
     Dosage: GENERIC ANASTRAZOLE
     Route: 065
     Dates: start: 2009
  2. GABAPENTIN. [Concomitant]
     Active Substance: GABAPENTIN
     Indication: FACIAL NERVE DISORDER
  3. ARIMIDEX [Suspect]
     Active Substance: ANASTROZOLE
     Indication: BREAST CANCER FEMALE
     Route: 048
  4. ARIMIDEX [Suspect]
     Active Substance: ANASTROZOLE
     Indication: BREAST CANCER FEMALE
     Route: 048
     Dates: start: 2009
  5. CARBAMAZETINE [Concomitant]
     Indication: FACIAL NERVE DISORDER

REACTIONS (5)
  - Swollen tongue [Unknown]
  - Hot flush [Unknown]
  - Urticaria papular [Unknown]
  - Swelling [Unknown]
  - Pruritus generalised [Unknown]

NARRATIVE: CASE EVENT DATE: 2009
